FAERS Safety Report 12527057 (Version 2)
Quarter: 2016Q3

REPORT INFORMATION
  Report Type: Spontaneous
  Country: LT (occurrence: LT)
  Receive Date: 20160705
  Receipt Date: 20160711
  Transmission Date: 20161109
  Serious: Yes (Other)
  Sender: FDA-Public Use
  Company Number: LT-GLAXOSMITHKLINE-LT2016GSK092349

PATIENT
  Age: 35 Year
  Sex: Female

DRUGS (2)
  1. KIVEXA [Suspect]
     Active Substance: ABACAVIR SULFATE\LAMIVUDINE
     Indication: HIV INFECTION
     Dosage: UNK
     Dates: end: 201604
  2. KALETRA [Concomitant]
     Active Substance: LOPINAVIR\RITONAVIR
     Indication: HIV INFECTION
     Dosage: UNK
     Dates: end: 201604

REACTIONS (6)
  - Epstein-Barr virus test positive [Unknown]
  - Eye swelling [Unknown]
  - Progressive multifocal leukoencephalopathy [Unknown]
  - Drug resistance [Unknown]
  - Pyrexia [Recovered/Resolved]
  - Facial paresis [Unknown]

NARRATIVE: CASE EVENT DATE: 201509
